FAERS Safety Report 11695843 (Version 1)
Quarter: 2015Q4

REPORT INFORMATION
  Report Type: Spontaneous
  Country: US (occurrence: None)
  Receive Date: 20151103
  Receipt Date: 20151103
  Transmission Date: 20160304
  Serious: Yes (Disabling, Other)
  Sender: FDA-Public Use
  Company Number: None

PATIENT
  Age: 10 Year
  Sex: Female
  Weight: 47.63 kg

DRUGS (5)
  1. RISPERIDONE .5 MG AJANT GENERIC. [Suspect]
     Active Substance: RISPERIDONE
     Indication: AGGRESSION
     Route: 048
     Dates: start: 20131101, end: 20151102
  2. RISPERIDONE .5 MG AJANT GENERIC. [Suspect]
     Active Substance: RISPERIDONE
     Indication: AUTISM
     Route: 048
     Dates: start: 20131101, end: 20151102
  3. KLONOPIN [Concomitant]
     Active Substance: CLONAZEPAM
  4. IBUPROFEN. [Concomitant]
     Active Substance: IBUPROFEN
  5. RISPERDAL [Concomitant]
     Active Substance: RISPERIDONE

REACTIONS (5)
  - Agitation [None]
  - Jaw disorder [None]
  - Muscle twitching [None]
  - Grimacing [None]
  - Eye disorder [None]

NARRATIVE: CASE EVENT DATE: 20150903
